FAERS Safety Report 11543288 (Version 2)
Quarter: 2015Q3

REPORT INFORMATION
  Report Type: Spontaneous
  Country: JP (occurrence: JP)
  Receive Date: 20150923
  Receipt Date: 20150929
  Transmission Date: 20151125
  Serious: Yes (Other)
  Sender: FDA-Public Use
  Company Number: JP-MEDA-2015090044

PATIENT
  Age: 80 Year
  Sex: Male

DRUGS (11)
  1. PRAZAXA [Concomitant]
     Active Substance: DABIGATRAN ETEXILATE MESYLATE
     Indication: ATRIAL FIBRILLATION
     Dates: start: 201502
  2. BICALUTAMIDE. [Suspect]
     Active Substance: BICALUTAMIDE
     Indication: PROSTATE CANCER
     Route: 048
     Dates: end: 201503
  3. SM [Concomitant]
     Indication: GASTRITIS
     Dates: start: 2010
  4. MILTAX [Concomitant]
     Active Substance: VIDARABINE
     Indication: BACK PAIN
     Dosage: ADEQUATE DOSE
     Route: 061
     Dates: start: 2010
  5. PROMAC [Concomitant]
     Active Substance: NITROFURANTOIN
     Indication: GASTRIC ULCER
     Route: 048
     Dates: start: 201502
  6. LUPRAC 4 MG [Suspect]
     Active Substance: TORSEMIDE
     Indication: CARDIAC FAILURE
     Route: 048
     Dates: start: 201502
  7. LENDORMIN [Concomitant]
     Active Substance: BROTIZOLAM
     Indication: INSOMNIA
     Route: 048
     Dates: start: 201502
  8. TEPRENONE [Concomitant]
     Active Substance: TEPRENONE
     Indication: GASTRITIS
     Route: 048
     Dates: start: 201502
  9. WARFARIN [Concomitant]
     Active Substance: WARFARIN
     Indication: ATRIAL FIBRILLATION
     Route: 048
     Dates: start: 20140226, end: 201506
  10. BICALUTAMIDE. [Suspect]
     Active Substance: BICALUTAMIDE
     Indication: PROSTATE CANCER
     Route: 048
     Dates: start: 201508
  11. NORVASC [Concomitant]
     Active Substance: AMLODIPINE BESYLATE
     Indication: HYPERTENSION
     Route: 048
     Dates: start: 201502

REACTIONS (1)
  - Gynaecomastia [Not Recovered/Not Resolved]

NARRATIVE: CASE EVENT DATE: 201506
